FAERS Safety Report 8236923-5 (Version None)
Quarter: 2012Q1

REPORT INFORMATION
  Report Type: 
  Country: None (occurrence: None)
  Receive Date: 20120327
  Receipt Date: 20120312
  Transmission Date: 20120608
  Serious: Yes (Other)
  Sender: FDA-Public Use
  Company Number: PHHY2012SE021616

PATIENT
  Age: 73 Year
  Sex: Male

DRUGS (4)
  1. ALLOPURINOL [Concomitant]
  2. GLEEVEC [Suspect]
     Indication: CHRONIC MYELOID LEUKAEMIA
     Dosage: 800 MG, QD
     Dates: start: 20100101, end: 20100517
  3. LASIX [Concomitant]
  4. TENORMIN [Concomitant]

REACTIONS (5)
  - HYPERTONIA [None]
  - PLEURISY [None]
  - WEIGHT DECREASED [None]
  - BLOOD CREATININE INCREASED [None]
  - RASH [None]
